FAERS Safety Report 11905537 (Version 9)
Quarter: 2018Q4

REPORT INFORMATION
  Report Type: Spontaneous
  Country: JP (occurrence: JP)
  Receive Date: 20160109
  Receipt Date: 20181031
  Transmission Date: 20190204
  Serious: Yes (Death)
  Sender: FDA-Public Use
  Company Number: JP-ABBVIE-16K-087-1534136-00

PATIENT
  Age: 65 Year
  Sex: Male
  Weight: 69 kg

DRUGS (9)
  1. HUMIRA [Suspect]
     Active Substance: ADALIMUMAB
     Indication: BEHCET^S SYNDROME
     Route: 058
     Dates: start: 20151214, end: 20151214
  2. PREDNISOLONE. [Concomitant]
     Active Substance: PREDNISOLONE
     Route: 042
     Dates: start: 20151128
  3. PREDNISOLONE. [Concomitant]
     Active Substance: PREDNISOLONE
     Indication: BEHCET^S SYNDROME
     Route: 042
     Dates: start: 20151030
  4. METHYLPREDNISOLONE SODIUM SUCCINATE. [Concomitant]
     Active Substance: METHYLPREDNISOLONE SODIUM SUCCINATE
     Indication: BEHCET^S SYNDROME
     Route: 041
     Dates: start: 20151216, end: 20151217
  5. PREDNISOLONE. [Concomitant]
     Active Substance: PREDNISOLONE
     Route: 042
     Dates: start: 20151125
  6. METHYLPREDNISOLONE SODIUM SUCCINATE. [Concomitant]
     Active Substance: METHYLPREDNISOLONE SODIUM SUCCINATE
     Route: 041
     Dates: start: 20151217, end: 20151218
  7. HUMIRA [Suspect]
     Active Substance: ADALIMUMAB
     Route: 058
     Dates: start: 201512, end: 20151218
  8. PREDNISOLONE. [Concomitant]
     Active Substance: PREDNISOLONE
     Route: 042
     Dates: start: 20151211
  9. PREDNISOLONE. [Concomitant]
     Active Substance: PREDNISOLONE
     Route: 042
     Dates: start: 20151212, end: 20151226

REACTIONS (4)
  - Chromosome banding abnormal [Unknown]
  - Myelodysplastic syndrome [Fatal]
  - Multiple organ dysfunction syndrome [Fatal]
  - Sepsis [Fatal]

NARRATIVE: CASE EVENT DATE: 20151216
